FAERS Safety Report 25968474 (Version 1)
Quarter: 2025Q4

REPORT INFORMATION
  Report Type: Spontaneous
  Country: US (occurrence: US)
  Receive Date: 20251028
  Receipt Date: 20251028
  Transmission Date: 20260117
  Serious: No
  Sender: NOVITIUM PHARMA
  Company Number: US-NOVITIUM PHARMA-000150

PATIENT
  Sex: Female

DRUGS (1)
  1. PRUCALOPRIDE [Suspect]
     Active Substance: PRUCALOPRIDE
     Indication: Constipation
     Dosage: STRENGTH 2MG
     Route: 048
     Dates: start: 202507

REACTIONS (2)
  - Vision blurred [Not Recovered/Not Resolved]
  - Nightmare [Recovered/Resolved]

NARRATIVE: CASE EVENT DATE: 20250101
